FAERS Safety Report 9852020 (Version 1)
Quarter: 2014Q1

REPORT INFORMATION
  Report Type: Spontaneous
  Country: IN (occurrence: None)
  Receive Date: 20140127
  Receipt Date: 20140127
  Transmission Date: 20141002
  Serious: Yes (Death, Hospitalization, Other)
  Sender: FDA-Public Use
  Company Number: 2014IN00041

PATIENT
  Sex: Male

DRUGS (2)
  1. CARVEDILOL [Suspect]
     Indication: CONGESTIVE CARDIOMYOPATHY
     Route: 048
  2. INTRAVENOUS IMMUNOGLOBULINS (INTRAVENOUS IMMUNOGLOBULINS) [Concomitant]

REACTIONS (3)
  - Cardiac failure [None]
  - Respiratory tract infection [None]
  - Condition aggravated [None]
